FAERS Safety Report 21850797 (Version 2)
Quarter: 2023Q1

REPORT INFORMATION
  Report Type: Report from Study
  Country: US (occurrence: US)
  Receive Date: 20230111
  Receipt Date: 20230127
  Transmission Date: 20230418
  Serious: Yes (Hospitalization, Other)
  Sender: FDA-Public Use
  Company Number: US-GILEAD-2023-0612181

PATIENT
  Age: 79 Year
  Sex: Male
  Weight: 119.8 kg

DRUGS (7)
  1. REMDESIVIR [Suspect]
     Active Substance: REMDESIVIR
     Indication: COVID-19
     Dosage: 100 MG, QD (5 MILLIGRAM PER MILLILITRE)
     Route: 042
     Dates: start: 20201120
  2. ASCORBIC ACID [Concomitant]
     Active Substance: ASCORBIC ACID
     Dosage: UNK
     Dates: start: 20201120
  3. THIAMINE [Concomitant]
     Active Substance: THIAMINE
     Dosage: UNK
     Dates: start: 20201120
  4. ALBUTEROL\IPRATROPIUM [Concomitant]
     Active Substance: ALBUTEROL\IPRATROPIUM
     Dosage: UNK
     Dates: start: 20201123
  5. ASPIRIN [Concomitant]
     Active Substance: ASPIRIN
     Dosage: UNK
     Dates: start: 20201120, end: 20201125
  6. PULMOZYME [Concomitant]
     Active Substance: DORNASE ALFA
     Dosage: UNK
     Dates: start: 20201120
  7. METHYLPREDNISOLONE [Concomitant]
     Active Substance: METHYLPREDNISOLONE

REACTIONS (1)
  - Retroperitoneal haemorrhage [Recovered/Resolved]

NARRATIVE: CASE EVENT DATE: 20201125
